FAERS Safety Report 23795793 (Version 1)
Quarter: 2024Q2

REPORT INFORMATION
  Report Type: Spontaneous
  Country: US (occurrence: US)
  Receive Date: 20240429
  Receipt Date: 20240429
  Transmission Date: 20240716
  Serious: No
  Sender: FDA-Public Use
  Company Number: US-ABBVIE-5736401

PATIENT
  Age: 28 Year
  Sex: Female

DRUGS (1)
  1. LILETTA [Suspect]
     Active Substance: LEVONORGESTREL
     Indication: Product used for unknown indication
     Dosage: TIME INTERVAL: AS NECESSARY: FORM STRENGTH 52 MILLIGRAM
     Route: 015
     Dates: start: 20230928, end: 20240418

REACTIONS (2)
  - Muscle spasms [Unknown]
  - Device expulsion [Unknown]

NARRATIVE: CASE EVENT DATE: 20240418
